FAERS Safety Report 8690091 (Version 7)
Quarter: 2013Q4

REPORT INFORMATION
  Report Type: Spontaneous
  Country: US (occurrence: US)
  Receive Date: 20120727
  Receipt Date: 20131210
  Transmission Date: 20140711
  Serious: No
  Sender: FDA-Public Use
  Company Number: US-ASTRAZENECA-2012SE12120

PATIENT
  Age: 76 Year
  Sex: Female
  Weight: 70.3 kg

DRUGS (8)
  1. SEROQUEL [Suspect]
     Indication: DEPRESSION
     Route: 048
  2. SEROQUEL [Suspect]
     Indication: DEPRESSION
     Route: 048
  3. SEROQUEL [Suspect]
     Indication: DEPRESSION
     Route: 048
  4. SEROQUEL [Suspect]
     Indication: DEPRESSION
     Route: 048
  5. SEROQUEL [Suspect]
     Indication: DEPRESSION
     Route: 048
  6. SEROQUEL [Suspect]
     Indication: DEPRESSION
     Route: 048
  7. SEROQUEL [Suspect]
     Indication: DEPRESSION
     Route: 048
  8. ZOFRAN [Concomitant]

REACTIONS (8)
  - Nausea [Not Recovered/Not Resolved]
  - Adverse drug reaction [Unknown]
  - Depression [Unknown]
  - Somnolence [Unknown]
  - Off label use [Unknown]
  - Drug dose omission [Unknown]
  - Drug effect incomplete [Unknown]
  - Intentional drug misuse [Not Recovered/Not Resolved]
